FAERS Safety Report 18543697 (Version 2)
Quarter: 2020Q4

REPORT INFORMATION
  Report Type: Spontaneous
  Country: AR (occurrence: AR)
  Receive Date: 20201125
  Receipt Date: 20201130
  Transmission Date: 20210114
  Serious: Yes (Other)
  Sender: FDA-Public Use
  Company Number: AR-AMGEN-ARGSP2020186558

PATIENT
  Age: 57 Year
  Sex: Female

DRUGS (1)
  1. ENBREL [Suspect]
     Active Substance: ETANERCEPT
     Indication: RHEUMATOID ARTHRITIS
     Dosage: 50 MILLIGRAM, QWK
     Route: 065
     Dates: start: 20190815, end: 202003

REACTIONS (5)
  - Pain [Not Recovered/Not Resolved]
  - Heat stroke [Not Recovered/Not Resolved]
  - Psoriasis [Not Recovered/Not Resolved]
  - Vomiting [Not Recovered/Not Resolved]
  - Anger [Not Recovered/Not Resolved]

NARRATIVE: CASE EVENT DATE: 202010
